FAERS Safety Report 26117312 (Version 2)
Quarter: 2025Q4

REPORT INFORMATION
  Report Type: Spontaneous
  Country: US (occurrence: US)
  Receive Date: 20251203
  Receipt Date: 20251225
  Transmission Date: 20260118
  Serious: No
  Sender: BAUSCH AND LOMB
  Company Number: US-BAUSCHBL-2025BNL032727

PATIENT
  Age: 91 Year
  Sex: Female

DRUGS (1)
  1. MIEBO [Suspect]
     Active Substance: PERFLUOROHEXYLOCTANE
     Indication: Product used for unknown indication
     Route: 047

REACTIONS (4)
  - Limb injury [Unknown]
  - Exposure via skin contact [Unknown]
  - Liquid product physical issue [Unknown]
  - Accidental exposure to product [Unknown]
